FAERS Safety Report 8245829-7 (Version None)
Quarter: 2012Q1

REPORT INFORMATION
  Report Type: 
  Country: None (occurrence: None)
  Receive Date: 20120330
  Receipt Date: 20120326
  Transmission Date: 20120608
  Serious: No
  Sender: FDA-Public Use
  Company Number: US-BIOGENIDEC-2012BI010577

PATIENT
  Age: 25 Year
  Sex: Male

DRUGS (4)
  1. AVONEX [Suspect]
     Indication: MULTIPLE SCLEROSIS
     Route: 030
     Dates: start: 20110112
  2. NAPROXEN (ALEVE) [Concomitant]
     Indication: PREMEDICATION
     Dates: start: 20120112
  3. XANAX [Concomitant]
     Indication: ANXIETY
     Dates: start: 20090101
  4. PERCOCET [Concomitant]
     Indication: ARTHRALGIA
     Dates: start: 20120101

REACTIONS (5)
  - INFLUENZA LIKE ILLNESS [None]
  - MUSCLE SPASMS [None]
  - INSOMNIA [None]
  - BACK PAIN [None]
  - ARTHRALGIA [None]
